FAERS Safety Report 5083092-9 (Version None)
Quarter: 2006Q3

REPORT INFORMATION
  Report Type: 
  Country: None (occurrence: None)
  Receive Date: 20060814
  Receipt Date: 20060803
  Transmission Date: 20061208
  Serious: Yes (Life-Threatening, Hospitalization)
  Sender: FDA-Public Use
  Company Number: 2006087255

PATIENT
  Age: 45 Year
  Sex: Female

DRUGS (7)
  1. UNASYN [Suspect]
     Indication: PYREXIA
     Dosage: 6 GRAM (3 GRAM, 2 IN 1 D), INTRAVENOUS
     Route: 042
     Dates: start: 20060622, end: 20060623
  2. UNASYN [Suspect]
     Indication: WHITE BLOOD CELL COUNT INCREASED
     Dosage: 6 GRAM (3 GRAM, 2 IN 1 D), INTRAVENOUS
     Route: 042
     Dates: start: 20060622, end: 20060623
  3. HEPARIN SODIUM [Concomitant]
  4. PHENYTOIN [Concomitant]
  5. PREDNISOLONE [Concomitant]
  6. JUVELA NICOTINATE (TOCOPHERYL NICOTINATE) [Concomitant]
  7. ENALAPRIL MALEATE [Concomitant]

REACTIONS (9)
  - BACK PAIN [None]
  - CONVULSION [None]
  - LIVER DISORDER [None]
  - LIVER FUNCTION TEST ABNORMAL [None]
  - MOVEMENT DISORDER [None]
  - PYREXIA [None]
  - STEVENS-JOHNSON SYNDROME [None]
  - VISUAL ACUITY REDUCED [None]
  - WHITE BLOOD CELL COUNT INCREASED [None]
